FAERS Safety Report 7950199-5 (Version None)
Quarter: 2011Q4

REPORT INFORMATION
  Report Type: 
  Country: None (occurrence: None)
  Receive Date: 20111130
  Receipt Date: 20111122
  Transmission Date: 20120403
  Serious: Yes (Other)
  Sender: FDA-Public Use
  Company Number: CHPA2011US06791

PATIENT
  Age: 40 Year
  Sex: Female

DRUGS (1)
  1. EXCEDRIN (MIGRAINE) [Suspect]
     Indication: HEADACHE
     Dosage: 2 DF, QD
     Route: 048
     Dates: start: 20110512, end: 20110513

REACTIONS (4)
  - ASTHMA [None]
  - PRODUCT TAMPERING [None]
  - DYSPNOEA [None]
  - TREMOR [None]
